FAERS Safety Report 17093092 (Version 3)
Quarter: 2019Q4

REPORT INFORMATION
  Report Type: Spontaneous
  Country: US (occurrence: US)
  Receive Date: 20191129
  Receipt Date: 20191209
  Transmission Date: 20200122
  Serious: Yes (Life-Threatening, Hospitalization, Other)
  Sender: FDA-Public Use
  Company Number: US-GLENMARK PHARMACEUTICALS-2019GMK044486

PATIENT
  Age: 20 Year
  Sex: Female

DRUGS (9)
  1. TACROLIMUS. [Suspect]
     Active Substance: TACROLIMUS
     Indication: TRANSPLANT REJECTION
     Dosage: UNK
     Route: 065
     Dates: start: 2004
  2. PREDNISONE. [Suspect]
     Active Substance: PREDNISONE
     Indication: TRANSPLANT REJECTION
  3. TACROLIMUS. [Suspect]
     Active Substance: TACROLIMUS
     Dosage: UNK (ADJUSTMENT OF TACROLIMUS DOSE TO TARGET TROUGH LEVELS BETWEEN 10 AND 15 NG/ML)
     Route: 065
     Dates: start: 2017
  4. SIROLIMUS. [Suspect]
     Active Substance: SIROLIMUS
     Indication: TRANSPLANT REJECTION
     Dosage: UNK
     Route: 065
     Dates: start: 2017
  5. INFLIXIMAB [Suspect]
     Active Substance: INFLIXIMAB
     Indication: TRANSPLANT REJECTION
     Dosage: 5 MG/KG (CYCLICAL)
     Route: 065
     Dates: start: 2017
  6. TACROLIMUS. [Suspect]
     Active Substance: TACROLIMUS
     Indication: IMMUNOSUPPRESSANT DRUG THERAPY
     Dosage: 1 MG, BID (EVERY 12 HOURS)
     Route: 065
     Dates: start: 2017, end: 2017
  7. ANTITHYMOCYTE IMMUNOGLOBULIN [Suspect]
     Active Substance: THYMOCYTE IMMUNE GLOBULIN NOS
     Dosage: 2 MG/KG, OD
     Route: 065
     Dates: start: 2017
  8. PREDNISONE. [Suspect]
     Active Substance: PREDNISONE
     Indication: IMMUNOSUPPRESSANT DRUG THERAPY
     Dosage: 5 MG, OD
     Route: 065
  9. ANTITHYMOCYTE IMMUNOGLOBULIN [Suspect]
     Active Substance: THYMOCYTE IMMUNE GLOBULIN NOS
     Indication: TRANSPLANT REJECTION
     Dosage: 1 MG/KG, OD
     Route: 065
     Dates: start: 2017

REACTIONS (8)
  - Epstein-Barr virus associated lymphoproliferative disorder [Recovered/Resolved]
  - Enterovirus infection [Unknown]
  - Bacterial translocation [Recovered/Resolved]
  - Epstein-Barr virus infection [Recovered/Resolved]
  - Rhinovirus infection [Unknown]
  - Product use in unapproved indication [Unknown]
  - Septic shock [Recovered/Resolved]
  - Product dose omission [Unknown]

NARRATIVE: CASE EVENT DATE: 2017
